FAERS Safety Report 15470236 (Version 1)
Quarter: 2018Q4

REPORT INFORMATION
  Report Type: Report from Study
  Country: CA (occurrence: CA)
  Receive Date: 20181005
  Receipt Date: 20181005
  Transmission Date: 20190205
  Serious: Yes (Other)
  Sender: FDA-Public Use
  Company Number: CA-JNJFOC-20180934237

PATIENT

DRUGS (1)
  1. REMICADE [Suspect]
     Active Substance: INFLIXIMAB
     Indication: CROHN^S DISEASE
     Dosage: STRENGTH = 100 MG??MOTHER^S DOSING
     Route: 064
     Dates: start: 20130123

REACTIONS (4)
  - Exposure via breast milk [Unknown]
  - Umbilical cord around neck [Unknown]
  - Foetal exposure during pregnancy [Unknown]
  - Foetal heart rate deceleration abnormality [Unknown]

NARRATIVE: CASE EVENT DATE: 201809
